FAERS Safety Report 16075480 (Version 2)
Quarter: 2019Q2

REPORT INFORMATION
  Report Type: Spontaneous
  Country: US (occurrence: US)
  Receive Date: 20190315
  Receipt Date: 20190419
  Transmission Date: 20190711
  Serious: No
  Sender: FDA-Public Use
  Company Number: US-GLAXOSMITHKLINE-US2019046241

PATIENT
  Age: 65 Year
  Sex: Female
  Weight: 64.85 kg

DRUGS (1)
  1. NUCALA [Suspect]
     Active Substance: MEPOLIZUMAB
     Indication: PRODUCT USED FOR UNKNOWN INDICATION
     Dosage: UNK
     Route: 065
     Dates: end: 201807

REACTIONS (2)
  - Pyrexia [Recovered/Resolved]
  - Injection related reaction [Recovered/Resolved]

NARRATIVE: CASE EVENT DATE: 201807
